FAERS Safety Report 9783430 (Version 1)
Quarter: 2013Q4

REPORT INFORMATION
  Report Type: Spontaneous
  Country: US (occurrence: None)
  Receive Date: 20131223
  Receipt Date: 20131223
  Transmission Date: 20140711
  Serious: No
  Sender: FDA-Public Use
  Company Number: B0954389A

PATIENT
  Sex: 0

DRUGS (15)
  1. REMIFENTANIL [Suspect]
  2. METOPROLOL (METOPROLOL) [Suspect]
  3. DILTIAZEM HYDROCHLORIDE [Suspect]
  4. ENOXAPARIN [Suspect]
  5. FRUSEMIDE (FUROSEMIDE) [Suspect]
  6. VITAMIN [Suspect]
  7. OXYGEN (OXYGEN) [Suspect]
  8. ETOMIDATE [Suspect]
  9. SUXAMETHONIUM [Suspect]
  10. PHENYLEPHRINE HYDROCHLORIDE [Suspect]
  11. OXYTOCIN [Suspect]
  12. FENTANYL (FENTANYL) [Suspect]
  13. DEXAMETHASONE [Suspect]
  14. FRUSEMIDE (FUROSEMIDE) [Suspect]
  15. ZOFRAN [Suspect]

REACTIONS (2)
  - Respiratory disorder neonatal [None]
  - Maternal drugs affecting foetus [None]
